FAERS Safety Report 9856675 (Version 2)
Quarter: 2014Q2

REPORT INFORMATION
  Report Type: Spontaneous
  Country: US (occurrence: US)
  Receive Date: 20140130
  Receipt Date: 20140502
  Transmission Date: 20141212
  Serious: Yes (Hospitalization)
  Sender: FDA-Public Use
  Company Number: US-GLAXOSMITHKLINE-A1057684A

PATIENT
  Age: 57 Year
  Sex: Male

DRUGS (12)
  1. VOTRIENT [Suspect]
     Indication: RENAL CELL CARCINOMA
     Dosage: 800MG PER DAY
     Route: 048
     Dates: start: 201304
  2. DILANTIN [Concomitant]
  3. KEPPRA [Concomitant]
  4. HYDROMORPHONE [Concomitant]
  5. MORPHINE SULFATE [Concomitant]
  6. CEPHALEXIN [Concomitant]
  7. METOPROLOL [Concomitant]
  8. WARFARIN [Concomitant]
  9. PREDNISONE [Concomitant]
  10. MULTIVITAMIN [Concomitant]
  11. ESCITALOPRAM [Concomitant]
  12. PREDNISOLONE EYE DROPS [Concomitant]

REACTIONS (2)
  - Convulsion [Recovered/Resolved]
  - Arthritis infective [Recovered/Resolved]
